FAERS Safety Report 22319433 (Version 1)
Quarter: 2023Q2

REPORT INFORMATION
  Report Type: Spontaneous
  Country: US (occurrence: US)
  Receive Date: 20230515
  Receipt Date: 20230515
  Transmission Date: 20230721
  Serious: No
  Sender: FDA-Public Use
  Company Number: US-BAYER-2023A059945

PATIENT
  Age: 69 Year
  Sex: Female

DRUGS (2)
  1. ASTEPRO [Suspect]
     Active Substance: AZELASTINE HYDROCHLORIDE
     Indication: Hypersensitivity
     Dosage: PRIME IT TWICE, USE IT TWICE IN EACH NOSTRIL
     Dates: start: 20230415, end: 20230417
  2. ASTEPRO [Suspect]
     Active Substance: AZELASTINE HYDROCHLORIDE
     Indication: Nasopharyngitis

REACTIONS (4)
  - Paraesthesia oral [Recovered/Resolved]
  - Cough [Recovered/Resolved]
  - Application site discomfort [Recovered/Resolved]
  - Application site hypersensitivity [Recovered/Resolved]
